FAERS Safety Report 19268978 (Version 1)
Quarter: 2021Q2

REPORT INFORMATION
  Report Type: Spontaneous
  Country: US (occurrence: US)
  Receive Date: 20210517
  Receipt Date: 20210517
  Transmission Date: 20210717
  Serious: Yes (Hospitalization)
  Sender: FDA-Public Use
  Company Number: None

PATIENT
  Sex: Female

DRUGS (17)
  1. CIPROFLOXACN [Concomitant]
     Active Substance: CIPROFLOXACIN
  2. SIVEXTRO [Concomitant]
     Active Substance: TEDIZOLID PHOSPHATE
  3. VIOS MIS SYSTEM [Concomitant]
  4. CITALOPRAM [Concomitant]
     Active Substance: CITALOPRAM HYDROBROMIDE
  5. ELIQUIS [Concomitant]
     Active Substance: APIXABAN
  6. MULTIVITAMIN WOMENS [Concomitant]
  7. CALCIUM [Concomitant]
     Active Substance: CALCIUM
  8. METOPROL SUC ER [Concomitant]
     Active Substance: METOPROLOL SUCCINATE
  9. NIFEDIPINE. [Concomitant]
     Active Substance: NIFEDIPINE
  10. MONTELUKAST [Concomitant]
     Active Substance: MONTELUKAST SODIUM
  11. ATORVASTATIN [Concomitant]
     Active Substance: ATORVASTATIN
  12. CAPECITABINE 500MG TAB [Suspect]
     Active Substance: CAPECITABINE
     Indication: BREAST CANCER FEMALE
     Dosage: ?          OTHER DOSE:2 TABS;?
     Route: 048
     Dates: start: 20201020
  13. BUPROPN HCL XL [Concomitant]
  14. IPRATROPIUM [Concomitant]
     Active Substance: IPRATROPIUM
  15. PREDNISONE. [Concomitant]
     Active Substance: PREDNISONE
  16. CEFDINIR. [Concomitant]
     Active Substance: CEFDINIR
  17. VITAMIN D [Concomitant]
     Active Substance: VITAMIN D NOS

REACTIONS (1)
  - Hospitalisation [None]
